FAERS Safety Report 8472455-7 (Version None)
Quarter: 2012Q2

REPORT INFORMATION
  Report Type: 
  Country: None (occurrence: None)
  Receive Date: 20120627
  Receipt Date: 20120130
  Transmission Date: 20120825
  Serious: No
  Sender: FDA-Public Use
  Company Number: US-AMGEN-USASP2011025155

PATIENT
  Age: 57 Year
  Sex: Male
  Weight: 94 kg

DRUGS (16)
  1. TOPROL-XL [Concomitant]
     Dosage: 100 MG, QD
     Route: 048
  2. CALCITRIOL [Concomitant]
     Dosage: 0.75 MUG, QD
     Route: 048
  3. HALOPERIDOL [Concomitant]
     Dosage: 100 MG, QMO
     Route: 048
  4. RENVELA [Concomitant]
     Dosage: 800 MG, UNK
     Route: 048
  5. VANCOMYCIN [Concomitant]
     Dosage: 2000 MG, PRN
  6. FOLIC ACID [Concomitant]
     Dosage: 1 MG, QD
     Route: 048
  7. PHOSLO [Concomitant]
     Dosage: 667 MG, BID
     Route: 048
  8. ASCORBIC ACID [Concomitant]
     Dosage: 500 MG, QD
     Route: 048
  9. COZAAR [Concomitant]
     Dosage: 100 MG, QD
     Route: 048
  10. CHROMAGEN FORTE [Concomitant]
     Dosage: 150 MG, QD
     Route: 048
  11. GENTAMICIN [Concomitant]
     Dosage: 140 MG, PRN
  12. TOBRAMYCIN [Concomitant]
     Dosage: 160 MG, PRN
  13. EPOGEN [Suspect]
     Indication: RENAL FAILURE CHRONIC
     Dosage: 10000 IU, 2 TIMES/WK
     Dates: start: 20110401
  14. CARDURA [Concomitant]
     Dosage: 4 MG, BID
     Route: 048
  15. IRON [Concomitant]
  16. VITAMIN E [Concomitant]
     Dosage: UNK UNK, QD
     Route: 048

REACTIONS (3)
  - INCORRECT STORAGE OF DRUG [None]
  - HAEMATOCRIT ABNORMAL [None]
  - HAEMOGLOBIN ABNORMAL [None]
